FAERS Safety Report 4601368-3 (Version None)
Quarter: 2005Q1

REPORT INFORMATION
  Report Type: 
  Country: None (occurrence: None)
  Receive Date: 20050308
  Receipt Date: 20050225
  Transmission Date: 20050727
  Serious: Yes (Life-Threatening, Hospitalization)
  Sender: FDA-Public Use
  Company Number: 200510722FR

PATIENT
  Age: 78 Year
  Sex: Male

DRUGS (6)
  1. LASILIX [Suspect]
     Route: 048
     Dates: start: 20040715, end: 20050126
  2. LOVENOX [Suspect]
     Route: 058
     Dates: start: 20050104
  3. ALDACTONE [Suspect]
     Route: 048
     Dates: start: 20041201, end: 20050117
  4. DIAMICRON [Suspect]
     Route: 048
     Dates: start: 20050107, end: 20050124
  5. XATRAL [Suspect]
     Route: 048
     Dates: start: 20040715, end: 20050117
  6. OMEPRAZOLE [Suspect]
     Route: 048
     Dates: start: 20041201, end: 20050117

REACTIONS (3)
  - CHOLESTASIS [None]
  - MITRAL VALVE REPLACEMENT [None]
  - PANCYTOPENIA [None]
